FAERS Safety Report 8545453-2 (Version None)
Quarter: 2012Q3

REPORT INFORMATION
  Report Type: 
  Country: None (occurrence: None)
  Receive Date: 20120727
  Receipt Date: 20111108
  Transmission Date: 20120928
  Serious: No
  Sender: FDA-Public Use
  Company Number: US-ASTRAZENECA-2011SE67498

PATIENT
  Age: 51 Year
  Sex: Female

DRUGS (5)
  1. SEROQUEL [Suspect]
     Route: 048
     Dates: start: 20111001
  2. LEXAPRO [Concomitant]
  3. SEROQUEL [Suspect]
     Indication: MAJOR DEPRESSION
     Route: 048
  4. SEROQUEL [Suspect]
     Route: 048
     Dates: start: 20111001
  5. SEROQUEL [Suspect]
     Indication: PANIC DISORDER
     Route: 048

REACTIONS (2)
  - MENSTRUAL DISORDER [None]
  - OFF LABEL USE [None]
